FAERS Safety Report 14100319 (Version 1)
Quarter: 2017Q4

REPORT INFORMATION
  Report Type: Spontaneous
  Country: US (occurrence: US)
  Receive Date: 20171017
  Receipt Date: 20171017
  Transmission Date: 20180321
  Serious: No
  Sender: FDA-Public Use
  Company Number: US-BEH-2017084436

PATIENT
  Age: 57 Year
  Sex: Male
  Weight: 105.21 kg

DRUGS (20)
  1. LIPITOR [Concomitant]
     Active Substance: ATORVASTATIN CALCIUM
     Route: 065
  2. BYSTOLIC [Concomitant]
     Active Substance: NEBIVOLOL HYDROCHLORIDE
     Route: 065
  3. TRAZODONE [Concomitant]
     Active Substance: TRAZODONE HYDROCHLORIDE
     Route: 065
  4. RAMIPRIL. [Concomitant]
     Active Substance: RAMIPRIL
     Route: 065
  5. LYRICA [Concomitant]
     Active Substance: PREGABALIN
     Route: 065
  6. SYMBICORT [Concomitant]
     Active Substance: BUDESONIDE\FORMOTEROL FUMARATE DIHYDRATE
     Route: 065
  7. PLAVIX [Concomitant]
     Active Substance: CLOPIDOGREL BISULFATE
     Route: 065
  8. HEPARIN [Concomitant]
     Active Substance: HEPARIN SODIUM
     Route: 065
  9. SODIUM CHLORIDE. [Concomitant]
     Active Substance: SODIUM CHLORIDE
     Route: 065
  10. EPINEPHRINE. [Concomitant]
     Active Substance: EPINEPHRINE
     Route: 065
  11. LEXAPRO [Concomitant]
     Active Substance: ESCITALOPRAM OXALATE
     Route: 065
  12. DIPHENHYDRAMINE. [Concomitant]
     Active Substance: DIPHENHYDRAMINE
     Route: 065
  13. PROVENTIL [Concomitant]
     Active Substance: ALBUTEROL
     Route: 065
  14. ALBUTEROL                          /00139501/ [Concomitant]
     Active Substance: ALBUTEROL
     Route: 065
  15. CLARITHROMYCIN. [Concomitant]
     Active Substance: CLARITHROMYCIN
     Route: 065
  16. ZEMAIRA [Suspect]
     Active Substance: .ALPHA.1-PROTEINASE INHIBITOR HUMAN
     Indication: ALPHA-1 ANTI-TRYPSIN DEFICIENCY
     Dosage: 60 MG/KG, QW
     Route: 042
     Dates: start: 20170725
  17. SEROQUEL [Concomitant]
     Active Substance: QUETIAPINE FUMARATE
     Route: 065
  18. ASPIRIN. [Concomitant]
     Active Substance: ASPIRIN
     Route: 065
  19. NIACIN. [Concomitant]
     Active Substance: NIACIN
     Route: 065
  20. ACETAMINOPHEN W/HYDROCODONE [Concomitant]
     Active Substance: ACETAMINOPHEN\HYDROCODONE
     Route: 065

REACTIONS (3)
  - Musculoskeletal pain [Unknown]
  - Hypokinesia [Unknown]
  - Paraesthesia [Unknown]

NARRATIVE: CASE EVENT DATE: 20171008
